FAERS Safety Report 23252796 (Version 2)
Quarter: 2023Q4

REPORT INFORMATION
  Report Type: Report from Study
  Country: US (occurrence: None)
  Receive Date: 20231201
  Receipt Date: 20231208
  Transmission Date: 20240109
  Serious: Yes (Other)
  Sender: FDA-Public Use
  Company Number: 2023A271191

PATIENT
  Age: 34 Year
  Sex: Female
  Weight: 83.5 kg

DRUGS (1)
  1. TEZSPIRE [Suspect]
     Active Substance: TEZEPELUMAB-EKKO
     Indication: Asthma
     Route: 058
     Dates: start: 20230831

REACTIONS (4)
  - Asthma [Unknown]
  - Condition aggravated [Unknown]
  - Cough [Unknown]
  - Drug ineffective [Unknown]
